FAERS Safety Report 20160188 (Version 1)
Quarter: 2021Q4

REPORT INFORMATION
  Report Type: Spontaneous
  Country: US (occurrence: None)
  Receive Date: 20211207
  Receipt Date: 20211207
  Transmission Date: 20220303
  Serious: Yes (Hospitalization)
  Sender: FDA-Public Use
  Company Number: None

PATIENT
  Age: 79 Year
  Sex: Male
  Weight: 97.0 kg

DRUGS (13)
  1. REGEN-COV [Suspect]
     Active Substance: CASIRIVIMAB\IMDEVIMAB
     Indication: COVID-19
     Dosage: FREQUENCY : ONCE;?
     Route: 041
     Dates: start: 20211122, end: 20211122
  2. REGEN-COV [Suspect]
     Active Substance: CASIRIVIMAB\IMDEVIMAB
     Dosage: FREQUENCY : ONCE;?
     Route: 041
  3. BETAPACE [Concomitant]
     Active Substance: SOTALOL HYDROCHLORIDE
  4. CEFTRIAXONE [Concomitant]
     Active Substance: CEFTRIAXONE
  5. DABIGATRAN [Concomitant]
     Active Substance: DABIGATRAN
  6. LISINOPRIL [Concomitant]
     Active Substance: LISINOPRIL
  7. MORPHINE [Concomitant]
     Active Substance: MORPHINE
  8. SODIUM CHLORIDE [Suspect]
     Active Substance: SODIUM CHLORIDE
  9. OXYCODONE [Concomitant]
     Active Substance: OXYCODONE
  10. PANTOPRAZOLE [Concomitant]
     Active Substance: PANTOPRAZOLE
  11. SIMVASTATIN [Concomitant]
     Active Substance: SIMVASTATIN
  12. TYLENOL [Concomitant]
     Active Substance: ACETAMINOPHEN
  13. ZOFRAN [Concomitant]
     Active Substance: ONDANSETRON HYDROCHLORIDE

REACTIONS (4)
  - Urinary tract infection [None]
  - Disease progression [None]
  - COVID-19 [None]
  - Oxygen saturation decreased [None]

NARRATIVE: CASE EVENT DATE: 20211122
